FAERS Safety Report 6599389-7 (Version None)
Quarter: 2010Q1

REPORT INFORMATION
  Report Type: 
  Country: None (occurrence: None)
  Receive Date: 20100224
  Receipt Date: 20100125
  Transmission Date: 20100710
  Serious: No
  Sender: FDA-Public Use
  Company Number: A0841527A

PATIENT
  Age: 82 Year
  Sex: Male

DRUGS (6)
  1. ARZERRA [Suspect]
     Indication: NON-HODGKIN'S LYMPHOMA
     Dosage: 2G WEEKLY
     Route: 042
     Dates: start: 20091228
  2. ATIVAN [Concomitant]
  3. LISINOPRIL [Concomitant]
  4. FLOMAX [Concomitant]
  5. OXYBUTYNIN [Concomitant]
  6. METOCLOPRAMIDE HYDROCHLORIDE [Concomitant]

REACTIONS (1)
  - THERAPEUTIC RESPONSE UNEXPECTED [None]
